FAERS Safety Report 7778160-4 (Version None)
Quarter: 2011Q3

REPORT INFORMATION
  Report Type: 
  Country: None (occurrence: None)
  Receive Date: 20110926
  Receipt Date: 20110921
  Transmission Date: 20111222
  Serious: Yes (Hospitalization)
  Sender: FDA-Public Use
  Company Number: US-B.I. PHARMACEUTICALS,INC./RIDGEFIELD-2011-BP-19857BP

PATIENT
  Age: 92 Year
  Sex: Female
  Weight: 45 kg

DRUGS (6)
  1. CARDIZEM [Concomitant]
     Dosage: 300 MG
  2. DOCUSATE [Concomitant]
  3. PRADAXA [Suspect]
     Indication: ATRIAL FIBRILLATION
     Dosage: 300 MG
     Dates: start: 20110501, end: 20110801
  4. HYDROCORTISONE CREAM [Concomitant]
  5. LASIX [Concomitant]
     Dosage: 60 MG
  6. POTASSIUM CHLORIDE [Concomitant]
     Dosage: 20 MEQ

REACTIONS (1)
  - GASTROINTESTINAL HAEMORRHAGE [None]
